FAERS Safety Report 13444821 (Version 1)
Quarter: 2017Q2

REPORT INFORMATION
  Report Type: Spontaneous
  Country: IL (occurrence: IL)
  Receive Date: 20170414
  Receipt Date: 20170414
  Transmission Date: 20170830
  Serious: Yes (Other)
  Sender: FDA-Public Use
  Company Number: IL-TEVA-757769ACC

PATIENT
  Age: 56 Year
  Sex: Female

DRUGS (1)
  1. CARBOPLATIN 10MG/ML [Suspect]
     Active Substance: CARBOPLATIN
     Indication: NEOPLASM MALIGNANT
     Dosage: INFUSION RATE OF 75MG PER 0.5 HOUR
     Route: 042
     Dates: end: 201611

REACTIONS (6)
  - Oxygen saturation decreased [Unknown]
  - Pain [Unknown]
  - Nausea [Unknown]
  - Erythema [Unknown]
  - Heart rate increased [Unknown]
  - Choking sensation [Unknown]

NARRATIVE: CASE EVENT DATE: 201611
